FAERS Safety Report 25363253 (Version 1)
Quarter: 2025Q2

REPORT INFORMATION
  Report Type: Spontaneous
  Country: CN (occurrence: CN)
  Receive Date: 20250527
  Receipt Date: 20250527
  Transmission Date: 20250716
  Serious: Yes (Hospitalization, Other)
  Sender: BAYER HEALTHCARE PHARMACEUTICALS INC.
  Company Number: CN-BAYER-2025A067647

PATIENT
  Age: 71 Year
  Sex: Female
  Weight: 55 kg

DRUGS (2)
  1. ULTRAVIST [Suspect]
     Active Substance: IOPROMIDE
     Indication: Computerised tomogram heart
     Route: 050
     Dates: start: 20250517, end: 20250517
  2. ULTRAVIST [Suspect]
     Active Substance: IOPROMIDE
     Indication: Electrocardiogram abnormal

REACTIONS (11)
  - Flushing [Recovered/Resolved]
  - Skin temperature increased [Recovering/Resolving]
  - Dizziness [Recovering/Resolving]
  - Lip swelling [Recovering/Resolving]
  - Swelling of eyelid [Recovering/Resolving]
  - Urticaria [Recovering/Resolving]
  - Dysphonia [Recovering/Resolving]
  - Hypertension [Recovering/Resolving]
  - Rash [Recovered/Resolved]
  - Oropharyngeal discomfort [Recovering/Resolving]
  - Respiratory rate increased [None]

NARRATIVE: CASE EVENT DATE: 20250517
